FAERS Safety Report 5688188-6 (Version None)
Quarter: 2008Q1

REPORT INFORMATION
  Report Type: 
  Country: None (occurrence: None)
  Receive Date: 20080327
  Receipt Date: 20080313
  Transmission Date: 20080703
  Serious: Yes (Hospitalization)
  Sender: FDA-Public Use
  Company Number: 2008000591

PATIENT
  Age: 69 Year
  Sex: Male

DRUGS (6)
  1. ERLOTINIB             (ERLOTINIB HCL) [Suspect]
     Indication: COLORECTAL CANCER
     Dosage: (50 MG, QD), ORAL
     Route: 048
     Dates: start: 20061107, end: 20070525
  2. CAPECITABINE       (INJECTION FOR INFUSION) [Suspect]
     Indication: COLORECTAL CANCER
     Dosage: (1600 MG, BID), INTRAVENOUS
     Route: 042
     Dates: start: 20061107, end: 20070525
  3. SOFLAX       (DOCUSATE SODIUM) [Concomitant]
  4. FLAXSEED [Concomitant]
  5. BENEFIBER [Concomitant]
  6. PANTOPRAZOLE SODIUM [Concomitant]

REACTIONS (2)
  - DISEASE PROGRESSION [None]
  - SMALL INTESTINAL OBSTRUCTION [None]
